FAERS Safety Report 12757453 (Version 3)
Quarter: 2016Q4

REPORT INFORMATION
  Report Type: Spontaneous
  Country: JP (occurrence: JP)
  Receive Date: 20160919
  Receipt Date: 20161121
  Transmission Date: 20170207
  Serious: Yes (Other)
  Sender: FDA-Public Use
  Company Number: JP-ROCHE-1831320

PATIENT
  Sex: Male

DRUGS (5)
  1. AVASTIN [Concomitant]
     Active Substance: BEVACIZUMAB
     Route: 065
  2. LUCENTIS [Suspect]
     Active Substance: RANIBIZUMAB
     Indication: AGE-RELATED MACULAR DEGENERATION
     Dosage: 0.05 ML, UNK
     Route: 031
     Dates: start: 201212, end: 201212
  3. EYLEA [Concomitant]
     Active Substance: AFLIBERCEPT
  4. LUCENTIS [Suspect]
     Active Substance: RANIBIZUMAB
     Indication: POLYPOIDAL CHOROIDAL VASCULOPATHY
     Dosage: ADMINISTERED FOR 41 TIMES
     Route: 031
     Dates: start: 20090513
  5. MACUGEN [Concomitant]
     Active Substance: PEGAPTANIB SODIUM

REACTIONS (1)
  - Age-related macular degeneration [Unknown]
